FAERS Safety Report 6746435-3 (Version None)
Quarter: 2010Q2

REPORT INFORMATION
  Report Type: 
  Country: None (occurrence: None)
  Receive Date: 20100528
  Receipt Date: 20100524
  Transmission Date: 20101027
  Serious: Yes (Other)
  Sender: FDA-Public Use
  Company Number: US-RB-008404-10

PATIENT
  Age: 53 Year
  Sex: Male

DRUGS (3)
  1. SUBOXONE [Suspect]
     Route: 060
     Dates: start: 20100427
  2. XANAX [Suspect]
     Route: 048
     Dates: start: 19800101, end: 20100511
  3. XANAX [Suspect]
     Route: 048
     Dates: start: 20100513

REACTIONS (3)
  - DISTURBANCE IN ATTENTION [None]
  - HALLUCINATION [None]
  - SOMNOLENCE [None]
